FAERS Safety Report 5748627-9 (Version None)
Quarter: 2008Q2

REPORT INFORMATION
  Report Type: 
  Country: None (occurrence: None)
  Receive Date: 20080523
  Receipt Date: 20080513
  Transmission Date: 20081010
  Serious: Yes (Other)
  Sender: FDA-Public Use
  Company Number: US-PFIZER INC-2008043046

PATIENT
  Sex: Female
  Weight: 77.272 kg

DRUGS (3)
  1. CHANTIX [Suspect]
     Indication: SMOKING CESSATION THERAPY
  2. NECON [Concomitant]
  3. DIPHENHYDRAMINE HCL [Concomitant]

REACTIONS (4)
  - ABNORMAL DREAMS [None]
  - INSOMNIA [None]
  - NIGHTMARE [None]
  - SOMNAMBULISM [None]
